FAERS Safety Report 4374189-7 (Version None)
Quarter: 2004Q2

REPORT INFORMATION
  Report Type: 
  Country: None (occurrence: None)
  Receive Date: 20040603
  Receipt Date: 20040520
  Transmission Date: 20050107
  Serious: Yes (Hospitalization, Other)
  Sender: FDA-Public Use
  Company Number: USA-2004-0015394

PATIENT
  Age: 29 Year
  Sex: Male

DRUGS (3)
  1. MORPHINE SULFATE [Suspect]
     Indication: PAIN
     Dosage: SEE IMAGE
     Route: 048
  2. FENTANYL [Suspect]
     Indication: PAIN
     Dosage: 4 MCG/HR, SEE TEXT, EPIDURAL
     Route: 008
  3. BUPIVACAINE [Suspect]
     Indication: PAIN
     Dosage: SEE TEXT, EPIDURAL
     Route: 008

REACTIONS (11)
  - ABDOMINAL DISTENSION [None]
  - ABDOMINAL PAIN [None]
  - DEHYDRATION [None]
  - DIARRHOEA [None]
  - DRUG WITHDRAWAL SYNDROME [None]
  - INADEQUATE ANALGESIA [None]
  - INTESTINAL OBSTRUCTION [None]
  - INTESTINAL STOMA COMPLICATION [None]
  - POST PROCEDURAL FISTULA [None]
  - POST PROCEDURAL VOMITING [None]
  - TENDERNESS [None]
